FAERS Safety Report 11246317 (Version 1)
Quarter: 2015Q3

REPORT INFORMATION
  Report Type: Spontaneous
  Country: US (occurrence: None)
  Receive Date: 20150706
  Receipt Date: 20150706
  Transmission Date: 20151125
  Serious: No
  Sender: FDA-Public Use
  Company Number: None

PATIENT
  Age: 66 Year
  Sex: Female
  Weight: 52.16 kg

DRUGS (2)
  1. METOPROLOL 25MG [Suspect]
     Active Substance: METOPROLOL
     Indication: TACHYCARDIA
     Route: 048
     Dates: start: 201407, end: 201504
  2. METOPROLOL 25MG [Suspect]
     Active Substance: METOPROLOL
     Indication: ANXIETY
     Route: 048
     Dates: start: 201407, end: 201504

REACTIONS (10)
  - Tinnitus [None]
  - Chest pain [None]
  - Constipation [None]
  - Sinus disorder [None]
  - Tremor [None]
  - Nausea [None]
  - Tachycardia [None]
  - Choking sensation [None]
  - Panic attack [None]
  - Insomnia [None]

NARRATIVE: CASE EVENT DATE: 20150411
